FAERS Safety Report 18279927 (Version 1)
Quarter: 2020Q3

REPORT INFORMATION
  Report Type: Spontaneous
  Country: DE (occurrence: DE)
  Receive Date: 20200917
  Receipt Date: 20200917
  Transmission Date: 20201103
  Serious: Yes (Other)
  Sender: FDA-Public Use
  Company Number: DE-MYLANLABS-2020M1078713

PATIENT
  Age: 47 Year
  Sex: Male

DRUGS (3)
  1. METHOTREXATE. [Suspect]
     Active Substance: METHOTREXATE
     Indication: RHEUMATOID ARTHRITIS
     Dosage: 15 MG, WEEKLY
  2. PREDNISOLONE. [Concomitant]
     Active Substance: PREDNISOLONE
     Dosage: 60 MG AT DECREASING DOSE
  3. METHOTREXATE. [Suspect]
     Active Substance: METHOTREXATE
     Dosage: 10 MG

REACTIONS (11)
  - Malaise [Unknown]
  - Glomerulonephritis rapidly progressive [Unknown]
  - Tenosynovitis [Unknown]
  - Performance status decreased [Unknown]
  - Nausea [Unknown]
  - Fatigue [Unknown]
  - Granulomatosis with polyangiitis [Unknown]
  - Myalgia [Unknown]
  - Pain [Unknown]
  - Condition aggravated [Unknown]
  - Renal failure [Unknown]

NARRATIVE: CASE EVENT DATE: 2018
